FAERS Safety Report 8609282-3 (Version None)
Quarter: 2012Q3

REPORT INFORMATION
  Report Type: 
  Country: None (occurrence: None)
  Receive Date: 20120821
  Receipt Date: 20120814
  Transmission Date: 20120928
  Serious: Yes (Hospitalization, Other)
  Sender: FDA-Public Use
  Company Number: PHHY2012IE070095

PATIENT
  Sex: Female

DRUGS (1)
  1. GILENYA [Suspect]
     Indication: RELAPSING-REMITTING MULTIPLE SCLEROSIS
     Dosage: 0.5 MG, UNK
     Route: 048
     Dates: start: 20120810

REACTIONS (5)
  - ELECTROCARDIOGRAM PR PROLONGATION [None]
  - ATRIOVENTRICULAR BLOCK SECOND DEGREE [None]
  - HEART RATE IRREGULAR [None]
  - BRADYCARDIA [None]
  - EXTRASYSTOLES [None]
